FAERS Safety Report 4342185-1 (Version None)
Quarter: 2004Q2

REPORT INFORMATION
  Report Type: 
  Country: None (occurrence: None)
  Receive Date: 20040409
  Receipt Date: 20031201
  Transmission Date: 20050107
  Serious: Yes (Hospitalization)
  Sender: FDA-Public Use
  Company Number: 03P-163-0243460-00

PATIENT
  Age: 8 Year
  Sex: Female
  Weight: 23.587 kg

DRUGS (6)
  1. DEPAKOTE [Suspect]
     Indication: AFFECTIVE DISORDER
     Dosage: 250 MG, 1 IN 1 D, ORAL; 500 MG, 1 IN 1 D, ORAL
     Route: 048
     Dates: start: 20030901, end: 20031124
  2. DEPAKOTE [Suspect]
     Indication: AFFECTIVE DISORDER
     Dosage: 250 MG, 1 IN 1 D, ORAL; 500 MG, 1 IN 1 D, ORAL
     Route: 048
     Dates: start: 20030901, end: 20031124
  3. CLONIDINE HCL [Concomitant]
  4. METHYLPHENIDATE HCL [Concomitant]
  5. TRILEPTAL [Concomitant]
  6. MELATONIN [Concomitant]

REACTIONS (1)
  - PANCREATITIS ACUTE [None]
